FAERS Safety Report 5935686-3 (Version None)
Quarter: 2008Q4

REPORT INFORMATION
  Report Type: 
  Country: None (occurrence: None)
  Receive Date: 20081029
  Receipt Date: 20081029
  Transmission Date: 20090506
  Serious: Yes (Hospitalization)
  Sender: FDA-Public Use
  Company Number: None

PATIENT
  Age: 52 Year
  Sex: Female
  Weight: 90 kg

DRUGS (3)
  1. TAXOTERE [Suspect]
     Indication: NON-SMALL CELL LUNG CANCER
     Dosage: 75 MG/M2, DAILY
     Dates: start: 20080929
  2. RAD001 [Suspect]
     Indication: NON-SMALL CELL LUNG CANCER
     Dosage: 5MG
     Dates: start: 20080929
  3. RAD001 [Suspect]
     Indication: NON-SMALL CELL LUNG CANCER
     Dosage: 5MG
     Dates: start: 20081020

REACTIONS (4)
  - BLOOD URINE PRESENT [None]
  - DIARRHOEA [None]
  - FEBRILE NEUTROPENIA [None]
  - INFLUENZA LIKE ILLNESS [None]
